FAERS Safety Report 8765904 (Version 1)
Quarter: 2012Q4

REPORT INFORMATION
  Report Type: 
  Country: US (occurrence: US)
  Receive Date: 20120904
  Receipt Date: 20120904
  Transmission Date: 20130627
  Serious: Yes (Hospitalization, Other)
  Sender: FDA-Public Use
  Company Number: PHHY2012US074489

PATIENT
  Age: 56 Year
  Sex: Male

DRUGS (2)
  1. PIPERACILLIN+TAZOBACTAM [Suspect]
     Indication: OSTEOMYELITIS
  2. MEROPENEM [Suspect]
     Indication: NOSOCOMIAL INFECTION

REACTIONS (10)
  - Pulmonary renal syndrome [Recovered/Resolved]
  - Tubulointerstitial nephritis [Recovered/Resolved]
  - Pyrexia [Recovered/Resolved]
  - Eosinophilia [Recovered/Resolved]
  - Urinary casts [Recovered/Resolved]
  - White blood cells urine [Recovered/Resolved]
  - Proteinuria [Recovered/Resolved]
  - Nosocomial infection [Recovered/Resolved]
  - Cross sensitivity reaction [Recovered/Resolved]
  - Rash [Recovered/Resolved]
